FAERS Safety Report 16767900 (Version 5)
Quarter: 2019Q3

REPORT INFORMATION
  Report Type: Spontaneous
  Country: IT (occurrence: IT)
  Receive Date: 20190903
  Receipt Date: 20190926
  Transmission Date: 20191005
  Serious: Yes (Other)
  Sender: FDA-Public Use
  Company Number: IT-ROCHE-2381069

PATIENT
  Age: 6 Year
  Sex: Female

DRUGS (7)
  1. CYCLOPHOSPHAMIDE. [Suspect]
     Active Substance: CYCLOPHOSPHAMIDE
     Indication: NEPHROTIC SYNDROME
     Dosage: UNK
     Route: 065
  2. MYCOPHENOLATE MOFETIL. [Suspect]
     Active Substance: MYCOPHENOLATE MOFETIL
     Indication: NEPHROTIC SYNDROME
     Dosage: UNK
     Route: 048
  3. RITUXIMAB. [Suspect]
     Active Substance: RITUXIMAB
     Indication: NEPHROTIC SYNDROME
     Dosage: 375 MG/M2 AT THE FIRST INFUSION
     Route: 041
  4. PREDNISONE. [Suspect]
     Active Substance: PREDNISONE
     Indication: NEPHROTIC SYNDROME
     Dosage: UNK
     Route: 048
  5. CYCLOSPORINE. [Suspect]
     Active Substance: CYCLOSPORINE
     Indication: NEPHROTIC SYNDROME
     Dosage: UNK
     Route: 065
  6. ENVARSUS XR [Suspect]
     Active Substance: TACROLIMUS
     Indication: NEPHROTIC SYNDROME
     Dosage: UNK
     Route: 048
  7. OFATUMUMAB [Suspect]
     Active Substance: OFATUMUMAB
     Indication: NEPHROTIC SYNDROME
     Dosage: 1,500 MG/1.73 M2
     Route: 065

REACTIONS (2)
  - Off label use [Unknown]
  - Hypogammaglobulinaemia [Unknown]
